FAERS Safety Report 5452065-6 (Version None)
Quarter: 2007Q3

REPORT INFORMATION
  Report Type: 
  Country: None (occurrence: None)
  Receive Date: 20070912
  Receipt Date: 20070829
  Transmission Date: 20080115
  Serious: Yes (Death)
  Sender: FDA-Public Use
  Company Number: 161089USA

PATIENT
  Age: 16 Year
  Sex: Male

DRUGS (1)
  1. FLUOXETINE HYDROCHLORIDE [Suspect]
     Dates: start: 20070101

REACTIONS (4)
  - ANGER [None]
  - COMPLETED SUICIDE [None]
  - GUN SHOT WOUND [None]
  - IRRITABILITY [None]
